FAERS Safety Report 10542717 (Version 2)
Quarter: 2014Q4

REPORT INFORMATION
  Report Type: Spontaneous
  Country: US (occurrence: US)
  Receive Date: 20141027
  Receipt Date: 20141118
  Transmission Date: 20150529
  Serious: No
  Sender: FDA-Public Use
  Company Number: US-009507513-1410USA012341

PATIENT
  Age: 27 Year
  Sex: Female
  Weight: 63.39 kg

DRUGS (5)
  1. IBUPROFEN. [Concomitant]
     Active Substance: IBUPROFEN
     Indication: MUSCLE SPASMS
     Dosage: 1 DF, Q8H AS NEEDED
     Route: 048
     Dates: start: 20141021
  2. PONSTEL [Concomitant]
     Active Substance: MEFENAMIC ACID
     Indication: PAIN
     Dosage: 500 MG, ONCE
     Route: 048
     Dates: start: 20141021
  3. NEXPLANON [Suspect]
     Active Substance: ETONOGESTREL
     Indication: CONTRACEPTION
     Dosage: 1 ROD/THREE YEARS
     Route: 059
     Dates: start: 201404, end: 20141021
  4. NEXPLANON [Suspect]
     Active Substance: ETONOGESTREL
     Dosage: 1 ROD/THREE YEARS
     Route: 059
     Dates: start: 20141021
  5. PONSTEL [Concomitant]
     Active Substance: MEFENAMIC ACID
     Dosage: 250 MG, Q6H
     Route: 048
     Dates: start: 20141021

REACTIONS (4)
  - Device breakage [Recovered/Resolved]
  - Nausea [Unknown]
  - Device kink [Recovered/Resolved]
  - Pain [Unknown]

NARRATIVE: CASE EVENT DATE: 20141007
